FAERS Safety Report 15209922 (Version 2)
Quarter: 2018Q3

REPORT INFORMATION
  Report Type: Spontaneous
  Country: US (occurrence: US)
  Receive Date: 20180727
  Receipt Date: 20180730
  Transmission Date: 20181010
  Serious: No
  Sender: FDA-Public Use
  Company Number: US-PFIZER INC-2018301341

PATIENT
  Sex: Female

DRUGS (1)
  1. ESTRING [Suspect]
     Active Substance: ESTRADIOL
     Dosage: UNK
     Route: 067

REACTIONS (5)
  - Product quality issue [Unknown]
  - Vulvovaginal dryness [Unknown]
  - Vulvovaginal discomfort [Unknown]
  - Poor quality drug administered [Unknown]
  - Wrong technique in product usage process [Unknown]
